FAERS Safety Report 5467169-1 (Version None)
Quarter: 2007Q3

REPORT INFORMATION
  Report Type: 
  Country: None (occurrence: None)
  Receive Date: 20070920
  Receipt Date: 20070907
  Transmission Date: 20080115
  Serious: Yes (Other)
  Sender: FDA-Public Use
  Company Number: 2007EU001943

PATIENT
  Sex: 0

DRUGS (4)
  1. PROGRAF [Suspect]
     Dosage: D, TRANSPLACENTAL
     Route: 064
  2. PREDNISOLONE [Concomitant]
  3. ASPIRIN [Concomitant]
  4. FERROUS SULFATE TAB [Concomitant]

REACTIONS (3)
  - ATRIOVENTRICULAR BLOCK SECOND DEGREE [None]
  - DRUG EXPOSURE DURING PREGNANCY [None]
  - FOETAL DISORDER [None]
